FAERS Safety Report 18559016 (Version 2)
Quarter: 2023Q4

REPORT INFORMATION
  Report Type: Report from Study
  Country: NL (occurrence: NL)
  Receive Date: 20201130
  Receipt Date: 20231102
  Transmission Date: 20240110
  Serious: Yes (Life-Threatening)
  Sender: FDA-Public Use
  Company Number: NL-NOVARTISPH-NVSC2020NL317249

PATIENT
  Age: 42 Year
  Sex: Female

DRUGS (1)
  1. LUTATHERA [Suspect]
     Active Substance: LUTETIUM OXODOTREOTIDE LU-177
     Indication: Neuroendocrine tumour
     Dosage: UNK
     Route: 013
     Dates: start: 20200903

REACTIONS (1)
  - Carcinoid crisis [Unknown]

NARRATIVE: CASE EVENT DATE: 20200914
